FAERS Safety Report 17791646 (Version 1)
Quarter: 2020Q2

REPORT INFORMATION
  Report Type: Spontaneous
  Country: US (occurrence: US)
  Receive Date: 20200515
  Receipt Date: 20200515
  Transmission Date: 20200714
  Serious: Yes (Other)
  Sender: FDA-Public Use
  Company Number: None

PATIENT
  Age: 84 Year
  Sex: Female
  Weight: 58.05 kg

DRUGS (15)
  1. DONEPEZIL. [Concomitant]
     Active Substance: DONEPEZIL
  2. ACETAMINOPHEN. [Concomitant]
     Active Substance: ACETAMINOPHEN
  3. XARELTO [Concomitant]
     Active Substance: RIVAROXABAN
  4. CALCIUM 600+D [Concomitant]
     Active Substance: CALCIUM\VITAMIN D
  5. XGEVA [Concomitant]
     Active Substance: DENOSUMAB
  6. METOPROLOL. [Concomitant]
     Active Substance: METOPROLOL
  7. ONDANSETRON [Concomitant]
     Active Substance: ONDANSETRON
  8. FUROSEMIDE. [Concomitant]
     Active Substance: FUROSEMIDE
  9. DEXAMETHASONE. [Concomitant]
     Active Substance: DEXAMETHASONE
  10. CYCLOPHOSPHAMIDE. [Suspect]
     Active Substance: CYCLOPHOSPHAMIDE
     Indication: PLASMA CELL MYELOMA
     Dosage: ?          OTHER FREQUENCY:WEEKLY;?
     Route: 048
     Dates: start: 20200401, end: 20200515
  11. GAMUNEX-C [Concomitant]
     Active Substance: HUMAN IMMUNOGLOBULIN G
  12. FIRMAGON [Concomitant]
     Active Substance: DEGARELIX ACETATE
  13. ACYCLOVIR. [Concomitant]
     Active Substance: ACYCLOVIR
  14. ESOMEPRAZOLE. [Concomitant]
     Active Substance: ESOMEPRAZOLE MAGNESIUM
  15. LOSARTAN. [Concomitant]
     Active Substance: LOSARTAN

REACTIONS (1)
  - Disease progression [None]

NARRATIVE: CASE EVENT DATE: 20200515
